FAERS Safety Report 9022292 (Version 1)
Quarter: 2013Q1

REPORT INFORMATION
  Report Type: Spontaneous
  Country: FR (occurrence: FR)
  Receive Date: 20130118
  Receipt Date: 20130118
  Transmission Date: 20140127
  Serious: Yes (Hospitalization)
  Sender: FDA-Public Use
  Company Number: FR-BRISTOL-MYERS SQUIBB COMPANY-17281213

PATIENT
  Age: 72 Year
  Sex: Male

DRUGS (7)
  1. GLUCOPHAGE TABS 1000 MG [Suspect]
     Dosage: 1 DF:GLUCOPHAGE 1000 MG, FILM-COATED TABLET (METFORMIN) 1 TABLET 3 TIMES DAILY
     Route: 048
  2. COAPROVEL TABS 300MG/ 25MG [Suspect]
     Dosage: 1 DF:COAPROVEL 300 MG/25 MG, FILM-COATED TABLET
     Route: 048
  3. VICTOZA [Suspect]
     Indication: TYPE 2 DIABETES MELLITUS
     Route: 058
     Dates: start: 201112, end: 20121004
  4. AMAREL [Suspect]
     Indication: TYPE 2 DIABETES MELLITUS
     Route: 048
     Dates: start: 201112, end: 20121004
  5. KARDEGIC [Suspect]
     Dosage: KARDEGIC 75 MG, ORAL POWDER (ACETYLSALICYLIC ACID) ONE DOSAGE FORM ONCE DAILY
     Route: 048
  6. EZETROL [Suspect]
     Dosage: EZETROL 10 MG, TABLET (EZETIMIBE) ONE TABLET ONCE DAILY
     Route: 048
  7. CHIBRO-PROSCAR [Suspect]
     Route: 048

REACTIONS (1)
  - Pancreatitis [Recovered/Resolved]
